FAERS Safety Report 25331179 (Version 1)
Quarter: 2025Q2

REPORT INFORMATION
  Report Type: Spontaneous
  Country: US (occurrence: None)
  Receive Date: 20250517
  Receipt Date: 20250517
  Transmission Date: 20250716
  Serious: Yes (Disabling, Other)
  Sender: FDA-CTU
  Company Number: None

PATIENT
  Sex: Female

DRUGS (9)
  1. CIPRO [Suspect]
     Active Substance: CIPROFLOXACIN HYDROCHLORIDE
     Indication: Multiple allergies
  2. CIPRO [Suspect]
     Active Substance: CIPROFLOXACIN HYDROCHLORIDE
     Indication: Asthma
  3. CIPRO [Suspect]
     Active Substance: CIPROFLOXACIN HYDROCHLORIDE
     Indication: Bronchial disorder
  4. LEVAQUIN [Suspect]
     Active Substance: LEVOFLOXACIN
  5. ASPIRIN [Concomitant]
     Active Substance: ASPIRIN
  6. PROBIOTICS NOS [Concomitant]
     Active Substance: PROBIOTICS NOS
  7. VITAMIN C [Concomitant]
     Active Substance: ASCORBIC ACID
  8. D3/K2 [Concomitant]
  9. MAGNESIUM [Concomitant]
     Active Substance: MAGNESIUM

REACTIONS (11)
  - Tendon rupture [None]
  - Cough [None]
  - Cerebrovascular accident [None]
  - Multiple allergies [None]
  - Pain [None]
  - Inflammation [None]
  - Carpal tunnel syndrome [None]
  - Nerve injury [None]
  - High frequency ablation [None]
  - Joint injury [None]
  - Muscle rupture [None]
